FAERS Safety Report 7932319-1 (Version None)
Quarter: 2011Q4

REPORT INFORMATION
  Report Type: 
  Country: None (occurrence: None)
  Receive Date: 20111121
  Receipt Date: 20111116
  Transmission Date: 20120403
  Serious: Yes (Hospitalization)
  Sender: FDA-Public Use
  Company Number: FR-MERCK-1111FRA00048

PATIENT
  Age: 70 Year
  Sex: Male

DRUGS (7)
  1. REPAGLINIDE [Concomitant]
     Route: 065
     Dates: start: 20040101
  2. IRBESARTAN [Concomitant]
     Route: 065
     Dates: start: 20040101
  3. SAW PALMETTO [Concomitant]
     Route: 065
     Dates: start: 20040101
  4. JANUVIA [Suspect]
     Indication: PANCREATOGENOUS DIABETES
     Route: 048
     Dates: start: 20110919, end: 20111007
  5. PANCREATIN [Concomitant]
     Route: 048
     Dates: start: 20040101
  6. JANUMET [Suspect]
     Indication: PANCREATOGENOUS DIABETES
     Route: 048
     Dates: start: 20110623, end: 20110919
  7. ASPIRIN AND PRAVASTATIN SODIUM [Concomitant]
     Route: 065
     Dates: start: 20040101

REACTIONS (2)
  - PORTAL VEIN THROMBOSIS [None]
  - HEPATITIS [None]
